FAERS Safety Report 4738449-X (Version None)
Quarter: 2005Q3

REPORT INFORMATION
  Report Type: 
  Country: None (occurrence: None)
  Receive Date: 20050803
  Receipt Date: 20050722
  Transmission Date: 20060218
  Serious: Yes (Other)
  Sender: FDA-Public Use
  Company Number: 2005088776

PATIENT
  Age: 33 Year
  Sex: Female

DRUGS (5)
  1. DEPO-PROVERA [Suspect]
     Indication: CONTRACEPTION
     Dosage: 150 MG (150 MG, 1ST INJECTION, SINGLE, TRIMESTRAL); SEE IMAGE
     Dates: start: 20030901, end: 20030901
  2. DEPO-PROVERA [Suspect]
     Indication: CONTRACEPTION
     Dosage: 150 MG (150 MG, 1ST INJECTION, SINGLE, TRIMESTRAL); SEE IMAGE
     Dates: start: 20050302, end: 20050302
  3. DEPO-PROVERA [Suspect]
     Indication: CONTRACEPTION
     Dosage: 150 MG (150 MG, 1ST INJECTION, SINGLE, TRIMESTRAL); SEE IMAGE
     Dates: start: 20050610, end: 20050610
  4. DOMPERIDONE (DOMPERIDONE) [Concomitant]
  5. OMEPRAZOLE [Concomitant]

REACTIONS (2)
  - GASTRITIS EROSIVE [None]
  - OESOPHAGITIS [None]
